FAERS Safety Report 13849224 (Version 1)
Quarter: 2017Q3

REPORT INFORMATION
  Report Type: Spontaneous
  Country: US (occurrence: US)
  Receive Date: 20170809
  Receipt Date: 20170809
  Transmission Date: 20171127
  Serious: Yes (Hospitalization)
  Sender: FDA-Public Use
  Company Number: None

PATIENT
  Age: 63 Year
  Sex: Male

DRUGS (5)
  1. ENBREL [Suspect]
     Active Substance: ETANERCEPT
     Indication: RHEUMATOID ARTHRITIS
     Dosage: ?          OTHER FREQUENCY:QW;?
     Route: 058
     Dates: start: 20160405
  2. DIAZEPAM. [Concomitant]
     Active Substance: DIAZEPAM
  3. OXYCODONE [Concomitant]
     Active Substance: OXYCODONE
  4. METHOTREXATE. [Concomitant]
     Active Substance: METHOTREXATE
  5. FENTANYL. [Concomitant]
     Active Substance: FENTANYL

REACTIONS (1)
  - Herpes zoster [None]

NARRATIVE: CASE EVENT DATE: 20170701
